FAERS Safety Report 19632697 (Version 1)
Quarter: 2021Q3

REPORT INFORMATION
  Report Type: Report from Study
  Country: US (occurrence: US)
  Receive Date: 20210728
  Receipt Date: 20210728
  Transmission Date: 20211014
  Serious: No
  Sender: FDA-Public Use
  Company Number: NVSC2021US151084

PATIENT
  Age: 60 Year
  Sex: Male

DRUGS (4)
  1. KESIMPTA [Suspect]
     Active Substance: OFATUMUMAB
     Indication: RELAPSING MULTIPLE SCLEROSIS
     Dosage: 20 MG, QMO
     Route: 058
     Dates: start: 20201130, end: 20210630
  2. KESIMPTA [Suspect]
     Active Substance: OFATUMUMAB
     Indication: RELAPSING-REMITTING MULTIPLE SCLEROSIS
  3. KESIMPTA [Suspect]
     Active Substance: OFATUMUMAB
     Indication: CLINICALLY ISOLATED SYNDROME
     Dosage: 20 MG, QMO
     Route: 058
     Dates: start: 20210630
  4. KESIMPTA [Suspect]
     Active Substance: OFATUMUMAB
     Indication: SECONDARY PROGRESSIVE MULTIPLE SCLEROSIS

REACTIONS (3)
  - Muscle strength abnormal [Unknown]
  - Sensory disturbance [Unknown]
  - Movement disorder [Unknown]

NARRATIVE: CASE EVENT DATE: 20201130
